FAERS Safety Report 7731312-1 (Version None)
Quarter: 2011Q3

REPORT INFORMATION
  Report Type: 
  Country: None (occurrence: None)
  Receive Date: 20110906
  Receipt Date: 20110706
  Transmission Date: 20111222
  Serious: No
  Sender: FDA-Public Use
  Company Number: US-AMGEN-USASP2011034382

PATIENT
  Age: 73 Year
  Sex: Male

DRUGS (10)
  1. VITAMIN B12                        /00056201/ [Concomitant]
  2. VITAMIN B6 [Concomitant]
  3. BICALUTAMIDE [Concomitant]
     Dosage: 1 MG, UNK
  4. MULTIVITAMIN                       /00097801/ [Concomitant]
  5. VITAMIN E                          /00110501/ [Concomitant]
  6. TRICOR [Concomitant]
  7. FISH OIL [Concomitant]
  8. XGEVA [Suspect]
     Indication: METASTASES TO BONE
     Dosage: UNK UNK, QMO
     Dates: start: 20110625
  9. TAMSULOSIN HCL [Concomitant]
  10. GLIMEPIRID [Concomitant]

REACTIONS (6)
  - ASTHENIA [None]
  - MIDDLE INSOMNIA [None]
  - PRESYNCOPE [None]
  - FATIGUE [None]
  - LISTLESS [None]
  - FEELING ABNORMAL [None]
